FAERS Safety Report 20799935 (Version 2)
Quarter: 2022Q3

REPORT INFORMATION
  Report Type: Spontaneous
  Country: RO (occurrence: RO)
  Receive Date: 20220509
  Receipt Date: 20220830
  Transmission Date: 20221027
  Serious: Yes (Death, Other)
  Sender: FDA-Public Use
  Company Number: RO-CELGENE-ROU-20210607902

PATIENT
  Age: 44 Year
  Sex: Female

DRUGS (6)
  1. AZACITIDINE [Suspect]
     Active Substance: AZACITIDINE
     Indication: Acute myeloid leukaemia
     Dosage: 75 MILLIGRAM/SQ. METER
     Route: 065
  2. AZACITIDINE [Suspect]
     Active Substance: AZACITIDINE
     Indication: Acute myeloid leukaemia recurrent
     Route: 041
  3. AZACITIDINE [Suspect]
     Active Substance: AZACITIDINE
     Indication: Acute myeloid leukaemia recurrent
     Route: 042
  4. OLAPARIB [Suspect]
     Active Substance: OLAPARIB
     Indication: Acute myeloid leukaemia
     Dosage: UNK
     Route: 065
  5. OLAPARIB [Suspect]
     Active Substance: OLAPARIB
     Indication: Ovarian epithelial cancer
  6. OLAPARIB [Suspect]
     Active Substance: OLAPARIB
     Indication: Ovarian cancer

REACTIONS (5)
  - Leukocytosis [Unknown]
  - Drug resistance [Unknown]
  - Infection [Fatal]
  - Treatment failure [Fatal]
  - Blast cell count increased [Unknown]
